FAERS Safety Report 13372440 (Version 1)
Quarter: 2017Q1

REPORT INFORMATION
  Report Type: Spontaneous
  Country: US (occurrence: US)
  Receive Date: 20170327
  Receipt Date: 20170327
  Transmission Date: 20170429
  Serious: No
  Sender: FDA-Public Use
  Company Number: US-TEVA-750376ACC

PATIENT
  Age: 32 Year
  Sex: Female

DRUGS (3)
  1. ZOLOFT [Concomitant]
     Active Substance: SERTRALINE HYDROCHLORIDE
  2. MODAFINIL. [Concomitant]
     Active Substance: MODAFINIL
  3. COPAXONE [Suspect]
     Active Substance: GLATIRAMER ACETATE
     Indication: MULTIPLE SCLEROSIS
     Route: 058
     Dates: start: 20140123

REACTIONS (2)
  - Fatigue [Unknown]
  - Muscular weakness [Unknown]

NARRATIVE: CASE EVENT DATE: 20170228
